FAERS Safety Report 7405014-5 (Version None)
Quarter: 2011Q2

REPORT INFORMATION
  Report Type: 
  Country: None (occurrence: None)
  Receive Date: 20110411
  Receipt Date: 20110401
  Transmission Date: 20111010
  Serious: Yes (Hospitalization, Other)
  Sender: FDA-Public Use
  Company Number: US-CEPHALON-2011001576

PATIENT
  Sex: Female
  Weight: 60 kg

DRUGS (10)
  1. NUVIGIL [Suspect]
     Route: 048
  2. PANTOPRAZOLE [Concomitant]
  3. FOLIC ACID [Concomitant]
  4. METHOTREXATE [Concomitant]
  5. DIAZEPAM [Concomitant]
  6. CYMBALTA [Concomitant]
  7. NUVIGIL [Suspect]
     Indication: FATIGUE
     Route: 048
     Dates: start: 20100801
  8. TRAZODONE HCL [Concomitant]
  9. DETROL LA [Concomitant]
  10. ADVAIR HFA [Concomitant]

REACTIONS (6)
  - MULTIPLE SCLEROSIS RELAPSE [None]
  - FALL [None]
  - ARTHROSCOPIC SURGERY [None]
  - KNEE ARTHROPLASTY [None]
  - DRUG PRESCRIBING ERROR [None]
  - JOINT INJURY [None]
